FAERS Safety Report 6417709-0 (Version None)
Quarter: 2009Q4

REPORT INFORMATION
  Report Type: 
  Country: None (occurrence: None)
  Receive Date: 20091026
  Receipt Date: 20091013
  Transmission Date: 20100525
  Serious: Yes (Disabling, Other)
  Sender: FDA-Public Use
  Company Number: ADR39802009

PATIENT
  Age: 54 Year
  Sex: Male

DRUGS (4)
  1. SIMVASTATIN [Suspect]
     Dosage: 20 MG ORAL
     Route: 048
     Dates: start: 20081118, end: 20081119
  2. SULFASALAZINE (1G) [Concomitant]
  3. TRAMADOL (100MG) [Concomitant]
  4. WARFARIN SODIUM [Concomitant]

REACTIONS (1)
  - URINARY RETENTION [None]
